FAERS Safety Report 15507884 (Version 2)
Quarter: 2018Q4

REPORT INFORMATION
  Report Type: Spontaneous
  Country: DE (occurrence: DE)
  Receive Date: 20181016
  Receipt Date: 20181019
  Transmission Date: 20190205
  Serious: Yes (Death, Hospitalization)
  Sender: FDA-Public Use
  Company Number: DE-PURDUE-GBR-2018-0060512

PATIENT
  Age: 71 Year
  Sex: Female
  Weight: 64 kg

DRUGS (21)
  1. METOCLOPRAMID                      /00041901/ [Suspect]
     Active Substance: METOCLOPRAMIDE
     Indication: SUBILEUS
     Dosage: UNK
     Route: 048
     Dates: start: 20121112, end: 20121117
  2. VITAMIN B COMPLEX [Suspect]
     Active Substance: CYANOCOBALAMIN\DEXPANTHENOL\NIACINAMIDE\PYRIDOXINE HYDROCHLORIDE\RIBOFLAVIN 5^-PHOSPHATE SODIUM\THIAMINE HYDROCHLORIDE\VITAMIN B COMPLEX
     Indication: PRODUCT USED FOR UNKNOWN INDICATION
     Dosage: UNK
     Route: 048
  3. BEVACIZUMAB. [Suspect]
     Active Substance: BEVACIZUMAB
     Indication: BREAST CANCER
     Dosage: 570 MG, UNK
     Route: 042
     Dates: start: 20121030, end: 20121030
  4. BEVACIZUMAB. [Suspect]
     Active Substance: BEVACIZUMAB
     Dosage: 640 MG, UNK
     Route: 042
     Dates: start: 20120524, end: 20120524
  5. PANTOZOL [Suspect]
     Active Substance: PANTOPRAZOLE SODIUM
     Indication: ABDOMINAL DISCOMFORT
     Dosage: 40 MG, DAILY (DAILY DOSE: 40 MG MILLGRAM(S) EVERY DAYS)
     Route: 048
  6. HYDROMORPHONE HYDROCHLORIDE. [Suspect]
     Active Substance: HYDROMORPHONE HYDROCHLORIDE
     Indication: PRODUCT USED FOR UNKNOWN INDICATION
     Dosage: 16 MG, DAILY (DAILY DOSE: 16 MG MILLGRAM(S) EVERY DAYS)
     Route: 048
  7. BEVACIZUMAB. [Suspect]
     Active Substance: BEVACIZUMAB
     Dosage: 640 MG, UNK
     Route: 042
     Dates: start: 20120706, end: 20120706
  8. FERRO-SANOL DUODENAL [Suspect]
     Active Substance: FERROUS GLYCINE SULFATE
     Indication: ANAEMIA
     Dosage: UNK
     Route: 048
     Dates: start: 20121108
  9. ARCOXIA [Suspect]
     Active Substance: ETORICOXIB
     Indication: PAIN
     Dosage: 90 MG, DAILY (DAILY DOSE: 90 MG MILLGRAM(S) EVERY DAYS)
     Route: 048
  10. PANTOZOL [Suspect]
     Active Substance: PANTOPRAZOLE SODIUM
     Indication: PROPHYLAXIS AGAINST GASTROINTESTINAL ULCER
  11. BISACODYL. [Concomitant]
     Active Substance: BISACODYL
     Indication: CONSTIPATION
     Dosage: UNK, DAILY
     Dates: start: 20120605, end: 20120606
  12. PREDNISOLON                        /00016201/ [Suspect]
     Active Substance: PREDNISOLONE
     Indication: PRODUCT USED FOR UNKNOWN INDICATION
     Dosage: 5 MG, DAILY (DAILY DOSE: 5 MG MILLGRAM(S) EVERY DAYS)
     Route: 048
  13. TAVOR (LORAZEPAM) [Suspect]
     Active Substance: LORAZEPAM
     Indication: ANXIETY
     Dosage: 1 MG, DAILY (DAILY DOSE: 1 MG MILLGRAM(S) EVERY DAYS)
     Route: 048
  14. PACLITAXEL. [Suspect]
     Active Substance: PACLITAXEL
     Indication: BREAST CANCER
     Dosage: 80 MG/M2, UNK (THE PATIENT RECEIVED SAME DOSE ON 30/MAY/2012, 06/JUN/2012, 20/JUN/2012, 27/JUN/2012,
     Route: 042
     Dates: start: 20120524, end: 20121030
  15. PERENTEROL [Suspect]
     Active Substance: SACCHAROMYCES CEREVISIAE
     Indication: DIARRHOEA
     Dosage: 3 UNK, DAILY (2 3)
     Route: 048
     Dates: start: 20121108
  16. AVASTIN [Suspect]
     Active Substance: BEVACIZUMAB
     Indication: BREAST CANCER
     Dosage: 570 MG, UNK
     Route: 042
     Dates: start: 20121030, end: 20121030
  17. AVASTIN [Suspect]
     Active Substance: BEVACIZUMAB
     Dosage: 640 MG, UNK
     Route: 042
     Dates: start: 20120706, end: 20120706
  18. ENALAPRIL [Suspect]
     Active Substance: ENALAPRIL
     Indication: HYPERTENSION
     Dosage: DAILY DOSE: 15 MG MILLGRAM(S) EVERY DAYS
     Route: 048
     Dates: start: 2010, end: 20121117
  19. REKAWAN [Suspect]
     Active Substance: POTASSIUM CHLORIDE
     Indication: PRODUCT USED FOR UNKNOWN INDICATION
     Dosage: 1000 MG, DAILY (DAILY DOSE: 1000 MG MILLGRAM(S) EVERY DAYS)
     Route: 048
  20. AVASTIN [Suspect]
     Active Substance: BEVACIZUMAB
     Dosage: 640 MG, UNK
     Route: 042
     Dates: start: 20120524, end: 20120524
  21. BISACODYL. [Concomitant]
     Active Substance: BISACODYL
     Indication: CONSTIPATION
     Dosage: 1 UNK, DAILY
     Route: 065
     Dates: start: 20120605, end: 20120606

REACTIONS (6)
  - Metastases to bone [Recovering/Resolving]
  - Diarrhoea [Recovered/Resolved]
  - Intestinal perforation [Fatal]
  - Cardiac arrest [Fatal]
  - Subileus [Fatal]
  - Femur fracture [Recovered/Resolved]

NARRATIVE: CASE EVENT DATE: 20120708
